FAERS Safety Report 6446196-1 (Version None)
Quarter: 2009Q4

REPORT INFORMATION
  Report Type: 
  Country: None (occurrence: None)
  Receive Date: 20091119
  Receipt Date: 20091112
  Transmission Date: 20100525
  Serious: Yes (Other)
  Sender: FDA-Public Use
  Company Number: AU-JNJFOC-20090601621

PATIENT
  Age: 48 Year
  Sex: Female

DRUGS (1)
  1. TOPAMAX [Suspect]
     Indication: MIGRAINE PROPHYLAXIS
     Dosage: 50 MG 1/2 DAILY FOR ONE WEEK
     Route: 048

REACTIONS (2)
  - PARAESTHESIA [None]
  - SEDATION [None]
